FAERS Safety Report 8093203-9 (Version None)
Quarter: 2012Q1

REPORT INFORMATION
  Report Type: 
  Country: None (occurrence: None)
  Receive Date: 20120128
  Receipt Date: 20111021
  Transmission Date: 20120608
  Serious: No
  Sender: FDA-Public Use
  Company Number: US-ABBOTT-11P-163-0718995-00

PATIENT
  Age: 57 Year
  Sex: Female

DRUGS (4)
  1. HUMIRA [Suspect]
     Dates: start: 20111020
  2. HUMIRA [Suspect]
     Indication: PSORIATIC ARTHROPATHY
     Dates: start: 20080401, end: 20100401
  3. HUMIRA [Suspect]
     Indication: PSORIASIS
  4. FLUOXETINE [Concomitant]
     Indication: ILL-DEFINED DISORDER

REACTIONS (10)
  - POST HERPETIC NEURALGIA [None]
  - HERPES ZOSTER [None]
  - PROTEIN URINE PRESENT [None]
  - HYPERLIPIDAEMIA [None]
  - URTICARIA [None]
  - PSORIASIS [None]
  - PSORIATIC ARTHROPATHY [None]
  - TYPE 2 DIABETES MELLITUS [None]
  - BLOOD GLUCOSE FLUCTUATION [None]
  - PRURITUS [None]
